FAERS Safety Report 13307234 (Version 10)
Quarter: 2017Q3

REPORT INFORMATION
  Report Type: Spontaneous
  Country: US (occurrence: US)
  Receive Date: 20170308
  Receipt Date: 20170817
  Transmission Date: 20171127
  Serious: Yes (Hospitalization, Other)
  Sender: FDA-Public Use
  Company Number: US-PFIZER INC-2017070236

PATIENT
  Age: 73 Year
  Sex: Male
  Weight: 97 kg

DRUGS (10)
  1. NORCO [Concomitant]
     Active Substance: ACETAMINOPHEN\HYDROCODONE BITARTRATE
     Dosage: UNK
  2. OXYCODONE [Concomitant]
     Active Substance: OXYCODONE
     Dosage: UNK
  3. AUGMENTIN [Concomitant]
     Active Substance: AMOXICILLIN\CLAVULANATE POTASSIUM
     Indication: PNEUMONIA
     Dosage: UNK
     Dates: end: 20170531
  4. LACTULOSE. [Concomitant]
     Active Substance: LACTULOSE
     Dosage: UNK
  5. LEVAQUIN [Concomitant]
     Active Substance: LEVOFLOXACIN
     Dosage: UNK
  6. SYMBICORT [Concomitant]
     Active Substance: BUDESONIDE\FORMOTEROL FUMARATE DIHYDRATE
     Dosage: UNK
  7. SUTENT [Suspect]
     Active Substance: SUNITINIB MALATE
     Dosage: UNK, CYCLIC (2 WEEKS ON AND 1 WEEK OFF)
  8. SUTENT [Suspect]
     Active Substance: SUNITINIB MALATE
     Indication: RENAL CANCER METASTATIC
     Dosage: 50 MG, CYCLIC (28 DAYS ON/14 DAYS OFF)/(2 WEEKS ON/1 WEEK OFF) (DAY 1 OF 1 WEEK OFF TODAY)
     Dates: start: 20170209
  9. TUDORZA INHALER [Concomitant]
     Dosage: UNK
  10. MORPHINE SULFATE. [Suspect]
     Active Substance: MORPHINE SULFATE
     Indication: PAIN
     Dosage: UNK

REACTIONS (30)
  - Pneumonia [Not Recovered/Not Resolved]
  - Abdominal infection [Unknown]
  - Lung infection [Unknown]
  - Swollen tongue [Unknown]
  - Glossodynia [Not Recovered/Not Resolved]
  - Musculoskeletal chest pain [Not Recovered/Not Resolved]
  - Oral discomfort [Unknown]
  - Bone pain [Unknown]
  - Pharyngitis [Unknown]
  - Eating disorder [Unknown]
  - Decreased appetite [Not Recovered/Not Resolved]
  - Asthenia [Not Recovered/Not Resolved]
  - Tongue discomfort [Recovering/Resolving]
  - Arthralgia [Recovered/Resolved]
  - Productive cough [Not Recovered/Not Resolved]
  - Spinal pain [Recovered/Resolved]
  - Thermal burn [Unknown]
  - Dry mouth [Unknown]
  - Ageusia [Unknown]
  - Insomnia [Unknown]
  - Oral pain [Recovering/Resolving]
  - Myalgia [Unknown]
  - Sputum discoloured [Not Recovered/Not Resolved]
  - Dysgeusia [Recovering/Resolving]
  - Ear disorder [Unknown]
  - Weight decreased [Unknown]
  - Abdominal discomfort [Unknown]
  - Neoplasm progression [Unknown]
  - Constipation [Not Recovered/Not Resolved]
  - Retching [Unknown]

NARRATIVE: CASE EVENT DATE: 201610
